FAERS Safety Report 16414718 (Version 1)
Quarter: 2019Q2

REPORT INFORMATION
  Report Type: Report from Study
  Country: EC (occurrence: EC)
  Receive Date: 20190611
  Receipt Date: 20190611
  Transmission Date: 20190711
  Serious: Yes (Death)
  Sender: FDA-Public Use
  Company Number: EC-ROCHE-2331209

PATIENT
  Age: 60 Year
  Sex: Female

DRUGS (1)
  1. HERCEPTIN [Suspect]
     Active Substance: TRASTUZUMAB
     Indication: BREAST CANCER STAGE III
     Dosage: UNKNOWN DOSE AND FREQUENCY
     Route: 065
     Dates: start: 2018, end: 2018

REACTIONS (1)
  - Cardiotoxicity [Fatal]

NARRATIVE: CASE EVENT DATE: 2018
